FAERS Safety Report 14252500 (Version 1)
Quarter: 2017Q4

REPORT INFORMATION
  Report Type: Report from Study
  Country: None (occurrence: BR)
  Receive Date: 20171205
  Receipt Date: 20171205
  Transmission Date: 20180321
  Serious: Yes (Hospitalization)
  Sender: FDA-Public Use
  Company Number: BR-ABBVIE-16P-020-1704470-00

PATIENT
  Sex: Male
  Weight: 65 kg

DRUGS (4)
  1. LOTAR [Concomitant]
     Active Substance: AMLODIPINE\LOSARTAN
     Indication: BLOOD PRESSURE MEASUREMENT
     Route: 065
     Dates: start: 2015
  2. SYNTHROID [Suspect]
     Active Substance: LEVOTHYROXINE SODIUM
     Indication: HYPOTHYROIDISM
     Route: 048
     Dates: start: 201605
  3. AMITRIPTYLINE [Concomitant]
     Active Substance: AMITRIPTYLINE
     Indication: DEPRESSION
     Route: 065
     Dates: start: 2012
  4. SYNTHROID [Suspect]
     Active Substance: LEVOTHYROXINE SODIUM
     Dosage: DAILY DOSE:50 MICROGRAM.FASTING
     Route: 048
     Dates: start: 201606, end: 201608

REACTIONS (6)
  - Abdominal discomfort [Not Recovered/Not Resolved]
  - Ulcer [Recovered/Resolved]
  - Inappropriate schedule of drug administration [Unknown]
  - Gastritis [Recovered/Resolved]
  - Oesophagitis [Recovered/Resolved]
  - Therapy cessation [Unknown]

NARRATIVE: CASE EVENT DATE: 2016
